FAERS Safety Report 25412241 (Version 2)
Quarter: 2025Q2

REPORT INFORMATION
  Report Type: Spontaneous
  Country: US (occurrence: US)
  Receive Date: 20250609
  Receipt Date: 20250611
  Transmission Date: 20250716
  Serious: No
  Sender: PFIZER
  Company Number: US-PFIZER INC-202500117027

PATIENT
  Age: 25 Year
  Sex: Female

DRUGS (1)
  1. EUCRISA [Suspect]
     Active Substance: CRISABOROLE
     Dosage: UNK UNK, 2X/DAY (APPLY TO THE AFFECTED SKIN TWICE DAILY UNTIL SYMPTOMS RESOLVE, THEN AS NEEDED)

REACTIONS (1)
  - Treatment failure [Unknown]
